FAERS Safety Report 15773485 (Version 1)
Quarter: 2018Q4

REPORT INFORMATION
  Report Type: Report from Study
  Country: None (occurrence: RO)
  Receive Date: 20181228
  Receipt Date: 20181228
  Transmission Date: 20190205
  Serious: Yes (Hospitalization)
  Sender: FDA-Public Use
  Company Number: RO-ABBVIE-18K-135-2602604-00

PATIENT
  Age: 25 Year
  Sex: Male

DRUGS (2)
  1. HUMIRA [Suspect]
     Active Substance: ADALIMUMAB
     Indication: CROHN^S DISEASE
     Route: 058
     Dates: start: 20171020
  2. PREDNISON [Concomitant]
     Active Substance: PREDNISONE
     Indication: PRODUCT USED FOR UNKNOWN INDICATION
     Dosage: 1-2 TABLETS PER DAY
     Route: 048
     Dates: start: 20180813

REACTIONS (4)
  - Intestinal fistula [Not Recovered/Not Resolved]
  - Intestinal stenosis [Recovering/Resolving]
  - Abdominal adhesions [Recovering/Resolving]
  - Gastrointestinal wall thickening [Recovering/Resolving]

NARRATIVE: CASE EVENT DATE: 20180813
